FAERS Safety Report 11153179 (Version 1)
Quarter: 2015Q2

REPORT INFORMATION
  Report Type: Spontaneous
  Country: US (occurrence: US)
  Receive Date: 20150601
  Receipt Date: 20150601
  Transmission Date: 20150821
  Serious: Yes (Other)
  Sender: FDA-Public Use
  Company Number: US-ASTRAZENECA-2015SE52069

PATIENT
  Age: 26439 Day
  Sex: Female

DRUGS (7)
  1. ALOT OF VITAMINS [Concomitant]
  2. LIPITOR [Concomitant]
     Active Substance: ATORVASTATIN CALCIUM
  3. LODINE [Concomitant]
     Active Substance: ETODOLAC
     Indication: PAIN IN EXTREMITY
     Dosage: PRN
  4. BRILINTA [Suspect]
     Active Substance: TICAGRELOR
     Indication: STENT PLACEMENT
     Route: 048
     Dates: start: 20150520
  5. VASOTEC [Concomitant]
     Active Substance: ENALAPRIL MALEATE
  6. BYSTOLIC [Concomitant]
     Active Substance: NEBIVOLOL HYDROCHLORIDE
  7. LODINE [Concomitant]
     Active Substance: ETODOLAC
     Indication: BACK PAIN
     Dosage: PRN

REACTIONS (2)
  - Diarrhoea [Unknown]
  - Haematochezia [Unknown]

NARRATIVE: CASE EVENT DATE: 20150522
